FAERS Safety Report 20112683 (Version 1)
Quarter: 2021Q4

REPORT INFORMATION
  Report Type: Spontaneous
  Country: ES (occurrence: ES)
  Receive Date: 20211125
  Receipt Date: 20211125
  Transmission Date: 20220303
  Serious: Yes (Life-Threatening)
  Sender: FDA-Public Use
  Company Number: None

PATIENT
  Age: 86 Year
  Sex: Male

DRUGS (11)
  1. LYRICA [Suspect]
     Active Substance: PREGABALIN
     Indication: Back pain
     Dosage: 75 MG, 2X/DAY (BREAKFAST AND DINNER)
     Route: 048
     Dates: start: 20190610
  2. OMEPRAZOL SANDOZ [OMEPRAZOLE] [Concomitant]
     Indication: Gastroenteritis
     Dosage: 20 MG, 1X/DAY (BEFORE BREAKFAST)
     Route: 048
     Dates: start: 20090625
  3. FUROSEMIDE [Concomitant]
     Active Substance: FUROSEMIDE
     Indication: Headache
     Dosage: 40 MG, 1X/DAY (BEFORE BREAKFAST)
     Route: 048
     Dates: start: 20200723
  4. TRAZODONE HYDROCHLORIDE [Concomitant]
     Active Substance: TRAZODONE HYDROCHLORIDE
     Indication: Insomnia
     Dosage: 100 MG, 1X/DAY (EVERY 24 HOURS, AT NIGHT)
     Route: 048
     Dates: start: 20160623
  5. AMLODIPINO STADA [Concomitant]
     Dosage: 10 MG, 1X/DAY (AT DINNER)
     Route: 048
     Dates: start: 20070108
  6. SALBUTAMOL ALDO UNION [Concomitant]
     Indication: Cataract
     Dosage: 100 UG, 3X/DAY (EVERY 8 HOURS)
     Route: 050
     Dates: start: 20200722
  7. FLUTICASONE FUROATE\VILANTEROL TRIFENATATE [Concomitant]
     Active Substance: FLUTICASONE FUROATE\VILANTEROL TRIFENATATE
     Indication: Bronchitis
     Dosage: 1.0 PUFF 1X/DAY (EVERY 24 HOURS)
     Route: 050
     Dates: start: 20200723
  8. HYDROCHLOROTHIAZIDE\IRBESARTAN [Concomitant]
     Active Substance: HYDROCHLOROTHIAZIDE\IRBESARTAN
     Dosage: UNK UNK, 1X/DAY (DOSAGE TEXT REPORTED AS 300 MG AT BREAKFAST)
     Route: 048
     Dates: start: 20070109
  9. METAMIZOLE MAGNESIUM [Concomitant]
     Active Substance: METAMIZOLE MAGNESIUM
     Indication: Back pain
     Dosage: 575 MG, 1X/DAY (AT BREAKFAST)
     Route: 048
     Dates: start: 20170608
  10. INCRUSE ELLIPTA [Concomitant]
     Active Substance: UMECLIDINIUM BROMIDE
     Indication: Cataract
     Dosage: UNK UNK, 1X/DAY; 1.0 PUFF EVERY 24 HOURS
     Route: 050
     Dates: start: 20200723
  11. LUMIGAN [Concomitant]
     Active Substance: BIMATOPROST
     Indication: Glaucoma
     Dosage: UNK UNK, 1X/DAY; 1.0 DROPS EVERY 24 HOURS AT NIGHT
     Route: 047
     Dates: start: 20131025

REACTIONS (3)
  - Anxiety [Recovering/Resolving]
  - Hallucination [Recovering/Resolving]
  - Psychotic behaviour [Recovering/Resolving]

NARRATIVE: CASE EVENT DATE: 20210901
